FAERS Safety Report 14785157 (Version 1)
Quarter: 2018Q2

REPORT INFORMATION
  Report Type: Report from Study
  Country: US (occurrence: US)
  Receive Date: 20180420
  Receipt Date: 20180420
  Transmission Date: 20180711
  Serious: Yes (Hospitalization)
  Sender: FDA-Public Use
  Company Number: US-SA-2018SA110275

PATIENT
  Age: 25 Year
  Sex: Female

DRUGS (1)
  1. LEMTRADA [Suspect]
     Active Substance: ALEMTUZUMAB
     Indication: MULTIPLE SCLEROSIS RELAPSE
     Route: 041

REACTIONS (3)
  - Respiratory tract congestion [Recovered/Resolved]
  - Heart rate decreased [Recovered/Resolved]
  - Haemoptysis [Recovered/Resolved]
